FAERS Safety Report 12893188 (Version 1)
Quarter: 2016Q4

REPORT INFORMATION
  Report Type: Spontaneous
  Country: IT (occurrence: IT)
  Receive Date: 20161028
  Receipt Date: 20161028
  Transmission Date: 20170207
  Serious: Yes (Hospitalization, Other)
  Sender: FDA-Public Use
  Company Number: PHHY2016IT136133

PATIENT
  Age: 77 Year
  Sex: Female

DRUGS (1)
  1. GLIVEC [Suspect]
     Active Substance: IMATINIB MESYLATE
     Indication: ACUTE LYMPHOCYTIC LEUKAEMIA
     Dosage: 400 MG, QD
     Route: 048
     Dates: start: 20160701, end: 20160913

REACTIONS (20)
  - Pericardial effusion [Unknown]
  - Hyperthyroidism [Unknown]
  - Cough [Recovering/Resolving]
  - Oropharyngeal discomfort [Unknown]
  - Opportunistic infection [Unknown]
  - Aortic valve incompetence [Unknown]
  - Dyspnoea [Unknown]
  - Oral disorder [Unknown]
  - Pulmonary arterial pressure increased [Unknown]
  - Lung consolidation [Unknown]
  - Blood pressure systolic increased [Unknown]
  - Leukocytosis [Unknown]
  - C-reactive protein increased [Unknown]
  - Left atrial dilatation [Unknown]
  - Diffuse alveolar damage [Unknown]
  - Burning sensation [Unknown]
  - Fungal infection [Unknown]
  - Pneumonitis [Recovered/Resolved]
  - Hyperpyrexia [Unknown]
  - Pneumonia viral [Unknown]

NARRATIVE: CASE EVENT DATE: 20160913
